FAERS Safety Report 8820847 (Version 2)
Quarter: 2012Q4

REPORT INFORMATION
  Report Type: Report from Study
  Country: JP (occurrence: JP)
  Receive Date: 20121002
  Receipt Date: 20121017
  Transmission Date: 20130627
  Serious: Yes (Hospitalization)
  Sender: FDA-Public Use
  Company Number: JP-ROCHE-1136171

PATIENT
  Age: 77 Year
  Sex: Female

DRUGS (24)
  1. TOCILIZUMAB [Suspect]
     Indication: RHEUMATOID ARTHRITIS
     Route: 041
     Dates: start: 20090130
  2. TOCILIZUMAB [Suspect]
     Indication: RHEUMATOID ARTHRITIS
     Route: 041
     Dates: start: 20091104, end: 20100825
  3. TOCILIZUMAB [Suspect]
     Indication: RHEUMATOID ARTHRITIS
     Route: 041
     Dates: start: 20100922, end: 20111207
  4. TOCILIZUMAB [Suspect]
     Indication: RHEUMATOID ARTHRITIS
     Dosage: 352-356mg
     Route: 041
     Dates: start: 20120104, end: 20120314
  5. TOCILIZUMAB [Suspect]
     Indication: RHEUMATOID ARTHRITIS
     Dosage: 368-372.8mg
     Route: 041
     Dates: start: 20120502
  6. PREDONINE [Concomitant]
     Indication: RHEUMATOID ARTHRITIS
     Route: 048
     Dates: end: 20091110
  7. PREDONINE [Concomitant]
     Indication: RHEUMATOID ARTHRITIS
     Route: 048
     Dates: start: 20091111, end: 20100105
  8. PREDONINE [Concomitant]
     Indication: RHEUMATOID ARTHRITIS
     Route: 048
     Dates: start: 20100106, end: 20100202
  9. PREDONINE [Concomitant]
     Indication: RHEUMATOID ARTHRITIS
     Route: 048
     Dates: start: 20100203, end: 20100330
  10. ALFAROL [Concomitant]
     Indication: OSTEOPOROSIS
     Route: 048
  11. VOLTAREN [Concomitant]
     Indication: RHEUMATOID ARTHRITIS
     Route: 048
     Dates: end: 20100105
  12. GASTER [Concomitant]
     Indication: PROPHYLAXIS
     Route: 048
  13. DEPAS [Concomitant]
     Indication: INSOMNIA
     Route: 048
  14. ALENDRONATE SODIUM [Concomitant]
     Indication: OSTEOPOROSIS
     Route: 048
  15. MAGNESIUM OXIDE [Concomitant]
     Indication: CONSTIPATION
     Route: 048
  16. MOHRUS TAPE L [Concomitant]
     Indication: RHEUMATOID ARTHRITIS
     Route: 061
  17. LIPITOR [Concomitant]
     Indication: HYPERLIPIDAEMIA
     Route: 048
  18. PREMINENT [Concomitant]
     Indication: HYPERTENSION
     Route: 048
  19. ADALAT CR [Concomitant]
     Indication: HYPERTENSION
     Route: 048
  20. AMARYL [Concomitant]
     Indication: DIABETES MELLITUS
     Route: 048
  21. BASEN [Concomitant]
     Indication: DIABETES MELLITUS
     Route: 048
  22. URSO [Concomitant]
     Indication: PROPHYLAXIS
     Route: 048
  23. CELECOX [Concomitant]
     Indication: RHEUMATOID ARTHRITIS
     Route: 048
     Dates: start: 20100106
  24. ZEPOLAS PAP [Concomitant]
     Indication: RHEUMATOID ARTHRITIS
     Route: 061

REACTIONS (1)
  - Papillary thyroid cancer [Recovered/Resolved]
